FAERS Safety Report 6120945-4 (Version None)
Quarter: 2009Q1

REPORT INFORMATION
  Report Type: 
  Country: None (occurrence: None)
  Receive Date: 20090312
  Receipt Date: 20090312
  Transmission Date: 20090719
  Serious: Yes (Other)
  Sender: FDA-Public Use
  Company Number: None

PATIENT
  Age: 76 Year
  Sex: Female
  Weight: 58.9676 kg

DRUGS (2)
  1. TAXOTERE [Suspect]
     Indication: OVARIAN DISORDER
     Dosage: 95 MG EVERY 3 WEEKS IV DRIP
     Route: 041
     Dates: start: 20081003, end: 20090306
  2. CARBOPLATIN [Suspect]
     Dosage: 300 MG 300 MG IV DRIP
     Route: 041

REACTIONS (2)
  - FLUID INTAKE REDUCED [None]
  - NAUSEA [None]
